FAERS Safety Report 9187823 (Version 1)
Quarter: 2013Q1

REPORT INFORMATION
  Report Type: Spontaneous
  Country: US (occurrence: US)
  Receive Date: 20130325
  Receipt Date: 20130325
  Transmission Date: 20140127
  Serious: No
  Sender: FDA-Public Use
  Company Number: US-BAUSCH-BL-2012-000215

PATIENT
  Age: 8 Year
  Sex: Female

DRUGS (1)
  1. POLYMYXIN B SULFATE AND TRIMETHOPRIM [Suspect]
     Indication: CONJUNCTIVITIS INFECTIVE
     Dosage: OPTHALMIC DROPS

REACTIONS (5)
  - Eye pain [Unknown]
  - Abnormal sensation in eye [Unknown]
  - Rash [Recovered/Resolved]
  - Eye pruritus [Unknown]
  - Erythema of eyelid [Unknown]
